FAERS Safety Report 6689827-3 (Version None)
Quarter: 2010Q2

REPORT INFORMATION
  Report Type: 
  Country: None (occurrence: None)
  Receive Date: 20100412
  Receipt Date: 20100225
  Transmission Date: 20101027
  Serious: No
  Sender: FDA-Public Use
  Company Number: 1000012065

PATIENT
  Age: 52 Year
  Sex: Male

DRUGS (3)
  1. BYSTOLIC [Suspect]
     Indication: HYPERTENSION
     Dosage: 10 MG (5 MG, 2 IN 1 D), ORAL
     Route: 048
     Dates: start: 20090601, end: 20100223
  2. LISINOPRIL [Concomitant]
  3. NORVASC [Concomitant]

REACTIONS (1)
  - HEART RATE DECREASED [None]
